FAERS Safety Report 4642214-1 (Version None)
Quarter: 2005Q2

REPORT INFORMATION
  Report Type: 
  Country: None (occurrence: None)
  Receive Date: 20050420
  Receipt Date: 20050412
  Transmission Date: 20051028
  Serious: Yes (Life-Threatening, Hospitalization)
  Sender: FDA-Public Use
  Company Number: 2005SE02072

PATIENT
  Age: 83 Year
  Sex: Female

DRUGS (10)
  1. CRESTOR [Suspect]
     Indication: DIABETES MELLITUS NON-INSULIN-DEPENDENT
     Dosage: 20 MG DAILY PO
     Route: 048
     Dates: start: 20050209, end: 20050214
  2. CRESTOR [Suspect]
     Indication: DYSLIPIDAEMIA
     Dosage: 20 MG DAILY PO
     Route: 048
     Dates: start: 20050209, end: 20050214
  3. METFORAL [Concomitant]
  4. ZYLORIC [Concomitant]
  5. RISPERDAL [Concomitant]
  6. SUGUAN [Concomitant]
  7. LASITONE [Concomitant]
  8. VALPRESSION [Concomitant]
  9. LANOXIN [Concomitant]
  10. ELOPRAM [Concomitant]

REACTIONS (6)
  - BLOOD GLUCOSE INCREASED [None]
  - DEPRESSED LEVEL OF CONSCIOUSNESS [None]
  - DIARRHOEA [None]
  - HYPOVOLAEMIC SHOCK [None]
  - RENAL FAILURE ACUTE [None]
  - RHABDOMYOLYSIS [None]
